FAERS Safety Report 23110771 (Version 4)
Quarter: 2024Q1

REPORT INFORMATION
  Report Type: Report from Study
  Country: US (occurrence: US)
  Receive Date: 20231026
  Receipt Date: 20240110
  Transmission Date: 20240410
  Serious: Yes (Hospitalization, Other)
  Sender: FDA-Public Use
  Company Number: US-BAYER-2023A150447

PATIENT
  Age: 75 Year
  Sex: Female
  Weight: 90.703 kg

DRUGS (21)
  1. ADEMPAS [Suspect]
     Active Substance: RIOCIGUAT
     Indication: Pulmonary arterial hypertension
     Dosage: UNK
     Dates: start: 20230829
  2. ADEMPAS [Suspect]
     Active Substance: RIOCIGUAT
     Indication: Pulmonary arterial hypertension
     Dosage: 2.5 MG, TID
     Route: 048
  3. ADEMPAS [Suspect]
     Active Substance: RIOCIGUAT
     Indication: Pulmonary arterial hypertension
     Dosage: 2.5 MG, TID
     Route: 048
  4. ADEMPAS [Suspect]
     Active Substance: RIOCIGUAT
     Indication: Pulmonary arterial hypertension
     Dosage: 2.5 MG, TID
     Route: 048
  5. UPTRAVI [Concomitant]
     Active Substance: SELEXIPAG
  6. ELIQUIS [Concomitant]
     Active Substance: APIXABAN
  7. TRACLEER [Concomitant]
     Active Substance: BOSENTAN
  8. XARELTO [Concomitant]
     Active Substance: RIVAROXABAN
  9. METOCLOPRAMIDE [Concomitant]
     Active Substance: METOCLOPRAMIDE
  10. MIRALAX [Concomitant]
     Active Substance: POLYETHYLENE GLYCOL 3350
  11. BUMETANIDE [Concomitant]
     Active Substance: BUMETANIDE
  12. PANTOPRAZOLE [Concomitant]
     Active Substance: PANTOPRAZOLE
  13. NORTRIPTYLINE [Concomitant]
     Active Substance: NORTRIPTYLINE
  14. PREDNISOLONE [Concomitant]
     Active Substance: PREDNISOLONE
  15. MIDODRINE [Concomitant]
     Active Substance: MIDODRINE
  16. GABAPENTIN [Concomitant]
     Active Substance: GABAPENTIN
  17. IRON [Concomitant]
     Active Substance: IRON
  18. VITAMIN D3 [Concomitant]
     Active Substance: CHOLECALCIFEROL
  19. VITAMINS [Concomitant]
     Active Substance: VITAMINS
  20. ONDANSETRON HYDROCHLORIDE [Concomitant]
     Active Substance: ONDANSETRON HYDROCHLORIDE
  21. OXYGEN [Concomitant]
     Active Substance: OXYGEN

REACTIONS (6)
  - Withdrawal syndrome [None]
  - Abdominal pain [None]
  - Abdominal pain upper [None]
  - Abdominal pain [Not Recovered/Not Resolved]
  - Diarrhoea [None]
  - Inappropriate schedule of product administration [None]

NARRATIVE: CASE EVENT DATE: 20230101
